FAERS Safety Report 22361526 (Version 2)
Quarter: 2023Q2

REPORT INFORMATION
  Report Type: Spontaneous
  Country: US (occurrence: US)
  Receive Date: 20230524
  Receipt Date: 20230620
  Transmission Date: 20230722
  Serious: Yes (Other)
  Sender: FDA-Public Use
  Company Number: US-AIMMUNE THERAPEUTICS, INC.-2023AIMT00465

PATIENT

DRUGS (4)
  1. PALFORZIA [Suspect]
     Active Substance: PEANUT
     Indication: Food allergy
     Dosage: IDE (0.5MG-6MG), ONCE
     Route: 048
     Dates: start: 202004, end: 202004
  2. PALFORZIA [Suspect]
     Active Substance: PEANUT
     Dosage: 300 MG, 1X/DAY
     Route: 048
     Dates: start: 2022, end: 20220404
  3. ALLERGENIC EXTRACT- PEANUT ARACHIS HYPOGAEA [Suspect]
     Active Substance: ALLERGENIC EXTRACT- PEANUT ARACHIS HYPOGAEA
     Indication: Product used for unknown indication
     Dosage: UNK UNK, 1X/DAY
     Route: 048
     Dates: start: 202204, end: 202212
  4. ALLERGENIC EXTRACT- PEANUT ARACHIS HYPOGAEA [Suspect]
     Active Substance: ALLERGENIC EXTRACT- PEANUT ARACHIS HYPOGAEA
     Dosage: UNK, ONCE, LAST DOSE PRIOR EVENT ONSET
     Route: 048
     Dates: start: 2022, end: 2022

REACTIONS (8)
  - Eosinophilic oesophagitis [Not Recovered/Not Resolved]
  - Failure to thrive [Unknown]
  - Chest pain [Unknown]
  - Dysphagia [Unknown]
  - Odynophagia [Unknown]
  - Feeding disorder [Unknown]
  - Dyspepsia [Unknown]
  - Nausea [Unknown]

NARRATIVE: CASE EVENT DATE: 20220601
